FAERS Safety Report 18417692 (Version 1)
Quarter: 2020Q4

REPORT INFORMATION
  Report Type: Spontaneous
  Country: US (occurrence: US)
  Receive Date: 20201022
  Receipt Date: 20201022
  Transmission Date: 20210114
  Serious: No
  Sender: FDA-Public Use
  Company Number: US-SEATTLE GENETICS-2020SGN04184

PATIENT
  Sex: Male

DRUGS (2)
  1. XELODA [Suspect]
     Active Substance: CAPECITABINE
     Indication: BREAST CANCER MALE
     Dosage: UNK
  2. TUKYSA [Suspect]
     Active Substance: TUCATINIB
     Indication: BREAST CANCER MALE
     Dosage: 300 MG, QD
     Dates: start: 20200910

REACTIONS (10)
  - Fatigue [Unknown]
  - Decreased appetite [Unknown]
  - Diarrhoea [Unknown]
  - Pruritus [Unknown]
  - Hypersomnia [Recovering/Resolving]
  - Skin ulcer [Unknown]
  - Skin discolouration [Unknown]
  - Gait disturbance [Unknown]
  - Adverse drug reaction [Unknown]
  - Rash [Unknown]
